FAERS Safety Report 9607281 (Version 2)
Quarter: 2013Q4

REPORT INFORMATION
  Report Type: Report from Study
  Country: DK (occurrence: DK)
  Receive Date: 20131009
  Receipt Date: 20131025
  Transmission Date: 20140711
  Serious: Yes (Death)
  Sender: FDA-Public Use
  Company Number: DK-BRISTOL-MYERS SQUIBB COMPANY-19493477

PATIENT
  Age: 63 Year
  Sex: Male

DRUGS (15)
  1. CETUXIMAB [Suspect]
     Indication: SQUAMOUS CELL CARCINOMA OF HEAD AND NECK
     Dosage: 520MG DY8-15 WKLY?500MG CYCLE 2 WKLY
     Route: 042
     Dates: start: 20130611, end: 20130903
  2. CISPLATIN [Suspect]
     Indication: SQUAMOUS CELL CARCINOMA OF HEAD AND NECK
     Dosage: (DAY 1 EVERY THIRD WEEK)
     Route: 042
     Dates: start: 20130611, end: 20130903
  3. FLUOROURACIL [Suspect]
     Indication: SQUAMOUS CELL CARCINOMA OF HEAD AND NECK
     Dosage: DAY 1-4 EVERY THIRD WEEK?8040MG CYCLE2-3,DY1-4 EVERY 3RD WK?8000MG CYCLE 4,DY1-4 EVERY 3RD WK
     Route: 042
     Dates: start: 20130611, end: 20130903
  4. PANTOPRAZOLE [Concomitant]
     Dosage: TAB
  5. GASTRO-TIMELETS [Concomitant]
     Dosage: TAB
  6. FUROSEMIDE [Concomitant]
     Dosage: TAB
  7. KALIUM [Concomitant]
     Dosage: TAB
  8. PREDNISOLONE [Concomitant]
  9. PARACETAMOL [Concomitant]
  10. OXYCODONE [Concomitant]
     Dosage: 10MG 5TIMES IN DAY IS ALSO TKN
  11. MIRTAZAPINE [Concomitant]
     Dosage: TAB
  12. IMOZOP [Concomitant]
     Dosage: TAB
  13. CALCIUM [Concomitant]
     Dosage: TAB
  14. MAGNESIUM HYDROXIDE [Concomitant]
     Dosage: TAB
  15. SODIUM FLUORIDE [Concomitant]
     Dosage: TOOTHPASTE?1DF=5MG/G

REACTIONS (1)
  - Pulmonary embolism [Fatal]
